FAERS Safety Report 6538260-3 (Version None)
Quarter: 2010Q1

REPORT INFORMATION
  Report Type: 
  Country: None (occurrence: None)
  Receive Date: 20100112
  Receipt Date: 20100112
  Transmission Date: 20100710
  Serious: No
  Sender: FDA-Public Use
  Company Number: None

PATIENT
  Sex: Male
  Weight: 74.8435 kg

DRUGS (1)
  1. DEXEDRINE [Suspect]
     Indication: ATTENTION DEFICIT/HYPERACTIVITY DISORDER
     Dosage: 15MG TWICE A DAY PO
     Route: 048
     Dates: start: 20040401, end: 20080809

REACTIONS (8)
  - ANGER [None]
  - APATHY [None]
  - ASTHENIA [None]
  - FATIGUE [None]
  - HEART RATE INCREASED [None]
  - NERVOUSNESS [None]
  - ONYCHOPHAGIA [None]
  - YAWNING [None]
